FAERS Safety Report 9997962 (Version 1)
Quarter: 2014Q1

REPORT INFORMATION
  Report Type: Other
  Country: US (occurrence: US)
  Receive Date: 20140311
  Receipt Date: 20140311
  Transmission Date: 20141002
  Serious: Yes (Hospitalization)
  Sender: FDA-Public Use
  Company Number: US-BRISTOL-MYERS SQUIBB COMPANY-20393591

PATIENT
  Age: 61 Year
  Sex: Male

DRUGS (1)
  1. WARFARIN SODIUM [Suspect]
     Dosage: TABS

REACTIONS (5)
  - Drug dispensing error [Unknown]
  - Haematuria [Unknown]
  - Lower gastrointestinal haemorrhage [Unknown]
  - Epistaxis [Unknown]
  - International normalised ratio increased [Recovered/Resolved]
